FAERS Safety Report 16819833 (Version 2)
Quarter: 2020Q3

REPORT INFORMATION
  Report Type: Report from Study
  Country: US (occurrence: US)
  Receive Date: 20190917
  Receipt Date: 20200702
  Transmission Date: 20201102
  Serious: Yes (Other)
  Sender: FDA-Public Use
  Company Number: PHEH2019US037559

PATIENT
  Sex: Female
  Weight: 62.1 kg

DRUGS (3)
  1. TYVASO [Suspect]
     Active Substance: TREPROSTINIL
     Indication: PULMONARY ARTERIAL HYPERTENSION
     Dosage: 18?54 ?G, (3?9 BREATHS) FOUR TIMES A DAY (QID)
     Route: 055
     Dates: start: 20200313
  2. TREPROSTINIL. [Suspect]
     Active Substance: TREPROSTINIL
     Indication: PULMONARY ARTERIAL HYPERTENSION
     Dosage: 54 NG/KG/MIN
     Route: 042
  3. ADCIRCA [Concomitant]
     Active Substance: TADALAFIL
     Indication: PULMONARY ARTERIAL HYPERTENSION
     Dosage: UNK
     Route: 065

REACTIONS (4)
  - Amyloidosis [Unknown]
  - Dyspnoea [Unknown]
  - Dyspepsia [Unknown]
  - Headache [Unknown]

NARRATIVE: CASE EVENT DATE: 2020
